FAERS Safety Report 19865148 (Version 1)
Quarter: 2021Q3

REPORT INFORMATION
  Report Type: Spontaneous
  Country: JP (occurrence: JP)
  Receive Date: 20210921
  Receipt Date: 20210921
  Transmission Date: 20211014
  Serious: Yes (Death, Other)
  Sender: FDA-Public Use
  Company Number: JP-JAZZ-2021-JP-016780

PATIENT
  Age: 47 Year
  Sex: Male

DRUGS (3)
  1. DEFITELIO [Suspect]
     Active Substance: DEFIBROTIDE SODIUM
     Indication: VENOOCCLUSIVE LIVER DISEASE
     Dosage: 25 MILLIGRAM/KILOGRAM/DAILY
     Route: 042
     Dates: start: 20210322, end: 20210404
  2. NONTHRON [Concomitant]
     Dosage: UNKNOWN DOSE
     Dates: start: 20210402, end: 20210404
  3. NONTHRON [Concomitant]
     Indication: PRODUCT USED FOR UNKNOWN INDICATION
     Dosage: UNKNOWN DOSE
     Dates: start: 20210326, end: 20210328

REACTIONS (3)
  - Condition aggravated [Fatal]
  - Lymphoma [Fatal]
  - Off label use [Unknown]

NARRATIVE: CASE EVENT DATE: 20210322
